FAERS Safety Report 14448253 (Version 2)
Quarter: 2018Q2

REPORT INFORMATION
  Report Type: Report from Study
  Country: US (occurrence: US)
  Receive Date: 20180126
  Receipt Date: 20180403
  Transmission Date: 20180711
  Serious: Yes (Death, Other)
  Sender: FDA-Public Use
  Company Number: US-PFIZER INC-2018031299

PATIENT
  Age: 70 Year
  Sex: Male

DRUGS (3)
  1. VELIPARIB [Suspect]
     Active Substance: VELIPARIB
     Indication: DUCTAL ADENOCARCINOMA OF PANCREAS
     Dosage: 20 MG, CYCLIC (TWICE DAILY ON DAYS 1 TO 12 IN 21 DAY CYCLES)
     Route: 048
  2. CISPLATIN. [Suspect]
     Active Substance: CISPLATIN
     Indication: DUCTAL ADENOCARCINOMA OF PANCREAS
     Dosage: 25 MG/M2, CYCLIC (INFUSED OVER 30 MINUTES, ON THE 3RD AND 10TH DAYS IN 21 DAY CYCLES)
     Route: 042
  3. GEMCITABINE HYDROCHLORIDE. [Suspect]
     Active Substance: GEMCITABINE HYDROCHLORIDE
     Indication: DUCTAL ADENOCARCINOMA OF PANCREAS
     Dosage: 600 MG/M2, CYCLIC, (INFUSED OVER 30 MINUTES, ON THE 3RD AND 10TH DAYS IN 21 DAY CYCLES)
     Route: 042

REACTIONS (1)
  - Large intestine perforation [Fatal]
